FAERS Safety Report 7981084-0 (Version None)
Quarter: 2011Q4

REPORT INFORMATION
  Report Type: 
  Country: None (occurrence: None)
  Receive Date: 20111215
  Receipt Date: 20111207
  Transmission Date: 20120403
  Serious: Yes (Hospitalization, Other)
  Sender: FDA-Public Use
  Company Number: US-AMGEN-USASP2011065276

PATIENT
  Sex: Female

DRUGS (1)
  1. ENBREL [Suspect]
     Indication: RHEUMATOID ARTHRITIS
     Dosage: 50 MG, QWK
     Dates: start: 20100601

REACTIONS (12)
  - HAEMOGLOBIN INCREASED [None]
  - NIGHT SWEATS [None]
  - FATIGUE [None]
  - HYPERTENSION [None]
  - NEUTROPHIL COUNT INCREASED [None]
  - HAEMATOCRIT INCREASED [None]
  - WEIGHT DECREASED [None]
  - LYMPHOCYTE COUNT DECREASED [None]
  - PALPITATIONS [None]
  - BLOOD THYROID STIMULATING HORMONE DECREASED [None]
  - CONTUSION [None]
  - DEPRESSION [None]
